FAERS Safety Report 24589400 (Version 1)
Quarter: 2024Q4

REPORT INFORMATION
  Report Type: Spontaneous
  Country: US (occurrence: US)
  Receive Date: 20241107
  Receipt Date: 20241107
  Transmission Date: 20250114
  Serious: No
  Sender: MYLAN
  Company Number: US-MYLANLABS-2024M1098508

PATIENT
  Age: 51 Year
  Sex: Female
  Weight: 117 kg

DRUGS (1)
  1. WIXELA INHUB [Suspect]
     Active Substance: FLUTICASONE PROPIONATE\SALMETEROL XINAFOATE
     Indication: Product used for unknown indication
     Dosage: 250/50 MICROGRAM, BID (1 PUFF: 2 TIMES A DAY, EVERY DAY)
     Route: 055
     Dates: start: 202409

REACTIONS (2)
  - Product dose omission issue [Unknown]
  - Device mechanical issue [Unknown]

NARRATIVE: CASE EVENT DATE: 20241028
